FAERS Safety Report 4736014-1 (Version None)
Quarter: 2005Q3

REPORT INFORMATION
  Report Type: 
  Country: None (occurrence: None)
  Receive Date: 20050805
  Receipt Date: 20050408
  Transmission Date: 20060218
  Serious: Yes (Hospitalization, Disabling)
  Sender: FDA-Public Use
  Company Number: US-MERCK-0504USA01299

PATIENT
  Sex: Female
  Weight: 77 kg

DRUGS (5)
  1. VIOXX [Suspect]
     Indication: FIBROMYALGIA
     Route: 048
     Dates: start: 20000101, end: 20030101
  2. DIOVAN [Concomitant]
     Route: 065
     Dates: start: 20020101
  3. NEXIUM [Concomitant]
     Route: 065
  4. PREMARIN [Concomitant]
     Route: 065
     Dates: start: 19830101
  5. SKELAXIN [Concomitant]
     Route: 065

REACTIONS (12)
  - ARTHROPATHY [None]
  - BLOOD CHOLESTEROL INCREASED [None]
  - CHEST PAIN [None]
  - CHRONIC OBSTRUCTIVE PULMONARY DISEASE [None]
  - FOOT OPERATION [None]
  - HAND DEFORMITY [None]
  - HIP SURGERY [None]
  - HYPERTENSION [None]
  - INSOMNIA [None]
  - INTERVERTEBRAL DISC OPERATION [None]
  - SPINAL FUSION SURGERY [None]
  - TRANSIENT ISCHAEMIC ATTACK [None]
